FAERS Safety Report 6254914-0 (Version None)
Quarter: 2009Q3

REPORT INFORMATION
  Report Type: 
  Country: None (occurrence: None)
  Receive Date: 20090702
  Receipt Date: 20090625
  Transmission Date: 20100115
  Serious: Yes (Hospitalization)
  Sender: FDA-Public Use
  Company Number: JP-PFIZER INC-2009231119

PATIENT
  Age: 88 Year

DRUGS (5)
  1. NORVASC [Suspect]
     Indication: HYPERTENSION
     Dosage: 5 MG, 1X/DAY
     Route: 048
     Dates: start: 20070101
  2. DIOVANE [Suspect]
     Dosage: UNK
     Route: 048
  3. AMARYL [Suspect]
     Dosage: UNK
     Route: 048
  4. PARIET [Concomitant]
     Route: 048
  5. ACTOS [Concomitant]
     Route: 048

REACTIONS (4)
  - DIARRHOEA [None]
  - DIARRHOEA HAEMORRHAGIC [None]
  - FACE OEDEMA [None]
  - OEDEMA PERIPHERAL [None]
